FAERS Safety Report 11071948 (Version 1)
Quarter: 2015Q2

REPORT INFORMATION
  Report Type: Spontaneous
  Country: US (occurrence: None)
  Receive Date: 20150427
  Receipt Date: 20150427
  Transmission Date: 20150821
  Serious: No
  Sender: FDA-Public Use
  Company Number: None

PATIENT
  Age: 41 Year
  Sex: Female
  Weight: 113.4 kg

DRUGS (1)
  1. DULCOLAX [Suspect]
     Active Substance: BISACODYL OR DOCUSATE SODIUM
     Indication: FAECAL INCONTINENCE
     Dates: start: 20150423, end: 20150424

REACTIONS (2)
  - Feeling jittery [None]
  - Tremor [None]

NARRATIVE: CASE EVENT DATE: 20150423
